FAERS Safety Report 21512279 (Version 4)
Quarter: 2023Q2

REPORT INFORMATION
  Report Type: Report from Study
  Country: US (occurrence: US)
  Receive Date: 20221027
  Receipt Date: 20230406
  Transmission Date: 20230722
  Serious: Yes (Other)
  Sender: FDA-Public Use
  Company Number: US-TAKEDA-2022TUS076870

PATIENT
  Sex: Female
  Weight: 95 kg

DRUGS (2)
  1. MOBOCERTINIB [Suspect]
     Active Substance: MOBOCERTINIB
     Indication: Lung neoplasm malignant
     Dosage: 160 MILLIGRAM, QD
     Route: 048
     Dates: start: 20221005
  2. MOBOCERTINIB [Suspect]
     Active Substance: MOBOCERTINIB
     Dosage: 160 MILLIGRAM, QD
     Route: 048

REACTIONS (11)
  - Epistaxis [Unknown]
  - Palpitations [Unknown]
  - Dyspnoea [Unknown]
  - Blood iron decreased [Unknown]
  - Dysphonia [Recovered/Resolved]
  - Rash [Not Recovered/Not Resolved]
  - Decreased appetite [Recovered/Resolved]
  - Diarrhoea [Unknown]
  - Dry mouth [Recovered/Resolved]
  - Oral pain [Unknown]
  - Taste disorder [Recovered/Resolved]
